FAERS Safety Report 9380770 (Version 1)
Quarter: 2013Q3

REPORT INFORMATION
  Report Type: Spontaneous
  Country: FR (occurrence: FR)
  Receive Date: 20130702
  Receipt Date: 20130702
  Transmission Date: 20140515
  Serious: Yes (Death, Hospitalization)
  Sender: FDA-Public Use
  Company Number: FR-PFIZER INC-2013190717

PATIENT
  Age: 51 Year
  Sex: Female

DRUGS (3)
  1. ARACYTINE [Suspect]
     Indication: CENTRAL NERVOUS SYSTEM LYMPHOMA
     Dosage: 1.428 ML, 530 ML 1 IN 21 DAYS
     Route: 037
     Dates: start: 20130105, end: 20130503
  2. METHOTREXATE [Suspect]
     Indication: CENTRAL NERVOUS SYSTEM LYMPHOMA
     Dosage: 15 MG, CYCLIC, 1 DAY OUT OF 21
     Route: 037
     Dates: start: 20121013, end: 20130503
  3. DEPO-MEDROL [Suspect]
     Indication: CENTRAL NERVOUS SYSTEM LYMPHOMA
     Dosage: 40 MG, CYCLIC, 1 DAY OUT OF 21
     Route: 037
     Dates: start: 20121013, end: 20130503

REACTIONS (2)
  - Myelitis [Fatal]
  - Pulmonary oedema [Fatal]
